FAERS Safety Report 13493178 (Version 1)
Quarter: 2017Q2

REPORT INFORMATION
  Report Type: Spontaneous
  Country: US (occurrence: US)
  Receive Date: 20170427
  Receipt Date: 20170427
  Transmission Date: 20170830
  Serious: No
  Sender: FDA-Public Use
  Company Number: US-CIPLA LTD.-2016US10214

PATIENT

DRUGS (4)
  1. LISINOPRIL. [Concomitant]
     Active Substance: LISINOPRIL
     Indication: HYPERTENSION
     Dosage: 10 MG, QD
     Route: 065
  2. ASPIRIN. [Concomitant]
     Active Substance: ASPIRIN
     Dosage: 325 MG HALF TABLET, QD
     Route: 065
  3. ATORVASTASTIN [Concomitant]
     Indication: BLOOD CHOLESTEROL INCREASED
     Dosage: 2.5 MG, QD
     Route: 065
  4. LEVAQUIN [Suspect]
     Active Substance: LEVOFLOXACIN
     Indication: SINUSITIS
     Dosage: HALF TABLET OF 750 MG, PER DAY
     Route: 048
     Dates: start: 20160723, end: 20160723

REACTIONS (4)
  - Diarrhoea [Recovered/Resolved]
  - Nausea [Recovered/Resolved]
  - Drug administration error [Unknown]
  - Head discomfort [Recovered/Resolved]

NARRATIVE: CASE EVENT DATE: 20160723
